FAERS Safety Report 6739019-4 (Version None)
Quarter: 2010Q2

REPORT INFORMATION
  Report Type: 
  Country: None (occurrence: None)
  Receive Date: 20100524
  Receipt Date: 20100524
  Transmission Date: 20101027
  Serious: No
  Sender: FDA-Public Use
  Company Number: None

PATIENT
  Sex: Female
  Weight: 45.3597 kg

DRUGS (1)
  1. LAMICTAL [Suspect]
     Indication: MANIA
     Dosage: 25MG 1 DAY FOR 1 WEEK PO
     Route: 048
     Dates: start: 20100506, end: 20100523

REACTIONS (4)
  - BACK PAIN [None]
  - HEADACHE [None]
  - INFLUENZA LIKE ILLNESS [None]
  - VULVOVAGINAL PRURITUS [None]
